FAERS Safety Report 16271746 (Version 1)
Quarter: 2019Q2

REPORT INFORMATION
  Report Type: Spontaneous
  Country: US (occurrence: US)
  Receive Date: 20190503
  Receipt Date: 20190503
  Transmission Date: 20190711
  Serious: No
  Sender: FDA-Public Use
  Company Number: US-PFIZER INC-2019188426

PATIENT
  Age: 62 Year
  Sex: Female

DRUGS (1)
  1. EUCRISA [Suspect]
     Active Substance: CRISABOROLE
     Indication: ECZEMA

REACTIONS (4)
  - Urticaria [Unknown]
  - Pruritus [Unknown]
  - Swelling [Unknown]
  - Skin haemorrhage [Unknown]
